FAERS Safety Report 9121368 (Version 2)
Quarter: 2013Q2

REPORT INFORMATION
  Report Type: Spontaneous
  Country: US (occurrence: US)
  Receive Date: 20130225
  Receipt Date: 20130607
  Transmission Date: 20140414
  Serious: Yes (Other)
  Sender: FDA-Public Use
  Company Number: US-BAYER-2013-021054

PATIENT
  Sex: Female

DRUGS (5)
  1. MIRENA [Suspect]
     Dosage: 20 MCG/24HR, CONT
     Route: 015
  2. ACYCLOVIR [ACICLOVIR] [Concomitant]
     Dosage: 400 MG, UNK
     Route: 048
  3. COLACE [Concomitant]
     Dosage: 100 MG, UNK
     Route: 048
  4. FIORICET [Concomitant]
     Dosage: 50-325-40 MG
     Route: 048
  5. NYSTATIN [Concomitant]
     Dosage: 100,000, UNITS/G
     Route: 061

REACTIONS (11)
  - Device dislocation [None]
  - Pain [None]
  - Discomfort [None]
  - Injury [None]
  - Pregnancy with contraceptive device [None]
  - Emotional distress [None]
  - Psychogenic pain disorder [None]
  - Anhedonia [None]
  - Anxiety [None]
  - Drug ineffective [None]
  - Device dislocation [None]
